FAERS Safety Report 7914676-5 (Version None)
Quarter: 2011Q4

REPORT INFORMATION
  Report Type: 
  Country: None (occurrence: None)
  Receive Date: 20111115
  Receipt Date: 20111108
  Transmission Date: 20120403
  Serious: Yes (Death, Life-Threatening, Hospitalization, Other)
  Sender: FDA-Public Use
  Company Number: PHHY2011JP70577

PATIENT
  Sex: Female

DRUGS (15)
  1. LASIX [Concomitant]
     Dosage: 20 MG
     Route: 048
     Dates: start: 20100525
  2. DUROTEP JANSSEN [Concomitant]
     Indication: METASTATIC RENAL CELL CARCINOMA
     Dosage: 2.1 MG, UNK
     Dates: start: 20110617, end: 20111025
  3. LORAZEPAM [Concomitant]
     Indication: METASTATIC RENAL CELL CARCINOMA
     Dosage: UNK
     Route: 048
     Dates: start: 20111024, end: 20111025
  4. OXYCONTIN [Concomitant]
  5. SULFAMETHOXAZOLE AND TRIMETHOPRIM [Concomitant]
     Indication: PROPHYLAXIS
     Dosage: 1 DF, UNK
     Route: 048
     Dates: start: 20110616, end: 20111025
  6. ZONISAMIDE [Concomitant]
     Indication: METASTATIC RENAL CELL CARCINOMA
     Dosage: 400 MG, UNK
     Route: 048
     Dates: start: 20110618, end: 20111025
  7. AFINITOR [Suspect]
     Dosage: 5 MG, DAILY
     Dates: start: 20110620, end: 20111025
  8. MUCOSTA [Concomitant]
     Dosage: 300 MG
     Route: 048
     Dates: start: 20100624
  9. AFINITOR [Suspect]
     Dosage: 5 MG, EVERY OTHER DAY
     Route: 048
     Dates: start: 20110502, end: 20110616
  10. FAMOTIDINE [Concomitant]
  11. CELECOXIB [Concomitant]
  12. AFINITOR [Suspect]
     Indication: METASTATIC RENAL CELL CARCINOMA
     Dosage: 5 MG, DAILY
     Route: 048
     Dates: start: 20110124, end: 20110414
  13. LEVOTHYROXINE SODIUM [Concomitant]
     Dosage: 25 MG
     Route: 048
     Dates: start: 20101115
  14. FERROUS SULFATE TAB [Concomitant]
  15. ALENDRONATE SODIUM [Concomitant]
     Indication: PROPHYLAXIS
     Dosage: 35 MG, UNK
     Route: 048
     Dates: start: 20110616, end: 20111025

REACTIONS (7)
  - INTERSTITIAL LUNG DISEASE [None]
  - NEOPLASM PROGRESSION [None]
  - NEOPLASM MALIGNANT [None]
  - COUGH [None]
  - MENINGIOMA MALIGNANT [None]
  - EPILEPSY [None]
  - RENAL FAILURE [None]
